FAERS Safety Report 25365479 (Version 1)
Quarter: 2025Q2

REPORT INFORMATION
  Report Type: Report from Study
  Country: PE (occurrence: PE)
  Receive Date: 20250527
  Receipt Date: 20250527
  Transmission Date: 20250717
  Serious: Yes (Hospitalization)
  Sender: ALEXION PHARMACEUTICALS
  Company Number: PE-AstraZeneca-CH-00873224A

PATIENT
  Age: 61 Year

DRUGS (1)
  1. OSIMERTINIB [Suspect]
     Active Substance: OSIMERTINIB
     Indication: Lung neoplasm malignant
     Dosage: 80 MILLIGRAM, QD

REACTIONS (3)
  - Anxiety [Unknown]
  - Pneumonitis [Unknown]
  - Bronchitis [Unknown]
